FAERS Safety Report 8507875-5 (Version None)
Quarter: 2012Q3

REPORT INFORMATION
  Report Type: 
  Country: None (occurrence: None)
  Receive Date: 20120709
  Receipt Date: 20120709
  Transmission Date: 20120928
  Serious: Yes (Disabling)
  Sender: FDA-Public Use
  Company Number: None

PATIENT
  Sex: Female
  Weight: 86.1834 kg

DRUGS (1)
  1. EFFEXOR [Suspect]
     Indication: ANXIETY
     Dosage: 225 MG, 1 X DAILEY, OTIC
     Dates: start: 20110705, end: 20120502

REACTIONS (5)
  - PARAESTHESIA [None]
  - BALANCE DISORDER [None]
  - ESSENTIAL TREMOR [None]
  - DRUG WITHDRAWAL SYNDROME [None]
  - VERTIGO [None]
